FAERS Safety Report 25591205 (Version 1)
Quarter: 2025Q3

REPORT INFORMATION
  Report Type: Spontaneous
  Country: US (occurrence: US)
  Receive Date: 20250722
  Receipt Date: 20250722
  Transmission Date: 20251021
  Serious: No
  Sender: CIPHER
  Company Number: US-CIPHER-2025-US-000043

PATIENT
  Sex: Male

DRUGS (1)
  1. NATROBA [Suspect]
     Active Substance: SPINOSAD
     Indication: Scabies

REACTIONS (3)
  - Accidental exposure to product [Unknown]
  - Eye irritation [Recovered/Resolved]
  - Ocular hyperaemia [Recovered/Resolved]
